FAERS Safety Report 6503193-5 (Version None)
Quarter: 2009Q4

REPORT INFORMATION
  Report Type: 
  Country: None (occurrence: None)
  Receive Date: 20091217
  Receipt Date: 20091208
  Transmission Date: 20100525
  Serious: Yes (Other)
  Sender: FDA-Public Use
  Company Number: JP-PFIZER INC-2009308803

PATIENT
  Age: 78 Year
  Sex: Female

DRUGS (5)
  1. SELARA [Suspect]
     Indication: HYPERTENSION
     Dosage: 50 MG, 1X/DAY
     Route: 048
     Dates: start: 20091122, end: 20091127
  2. ARTIST [Suspect]
     Indication: HYPERTENSION
     Dosage: 5 MG, 1X/DAY
     Route: 048
     Dates: start: 20091122, end: 20091127
  3. BLOPRESS [Suspect]
     Indication: HYPERTENSION
     Dosage: 8 MG, 1X/DAY
     Route: 048
     Dates: start: 20091122, end: 20091127
  4. DIGOXIN [Suspect]
     Indication: CARDIAC FAILURE
     Dosage: 0.125 MG, 1X/DAY
     Route: 048
     Dates: start: 20091122, end: 20091127
  5. LASIX [Suspect]
     Indication: CARDIAC FAILURE
     Dosage: 40 MG, 1X/DAY
     Route: 048
     Dates: start: 20091122, end: 20091127

REACTIONS (3)
  - BLOOD POTASSIUM INCREASED [None]
  - DECREASED APPETITE [None]
  - FEELING ABNORMAL [None]
